FAERS Safety Report 7427585-5 (Version None)
Quarter: 2011Q2

REPORT INFORMATION
  Report Type: 
  Country: None (occurrence: None)
  Receive Date: 20110420
  Receipt Date: 20110406
  Transmission Date: 20111010
  Serious: Yes (Death)
  Sender: FDA-Public Use
  Company Number: KE-BAXTER-2011BH010779

PATIENT
  Weight: 10 kg

DRUGS (9)
  1. HUMAN ALBUMIN IMMUNO 5% [Suspect]
     Indication: FLUID REPLACEMENT
     Route: 042
     Dates: start: 20090626
  2. DIAZEPAM [Concomitant]
     Indication: PRODUCT USED FOR UNKNOWN INDICATION
     Route: 042
     Dates: start: 20090601, end: 20090601
  3. DEXTROSE [Concomitant]
     Indication: HYPOGLYCAEMIA
     Route: 065
     Dates: start: 20090626, end: 20090626
  4. CEFTRIAXONE [Concomitant]
     Indication: PRODUCT USED FOR UNKNOWN INDICATION
     Route: 042
     Dates: start: 20090601
  5. QUININE SULFATE [Concomitant]
     Route: 030
  6. PARACETAMOL [Concomitant]
     Indication: PRODUCT USED FOR UNKNOWN INDICATION
     Route: 054
     Dates: start: 20090601
  7. PHENOBARBITONE [Concomitant]
     Indication: CONVULSION
     Route: 065
     Dates: start: 20090601
  8. QUININE SULFATE [Concomitant]
     Indication: PRODUCT USED FOR UNKNOWN INDICATION
     Route: 042
     Dates: start: 20090601
  9. VALPROATE SODIUM [Concomitant]
     Indication: CONVULSION
     Route: 065
     Dates: start: 20090601

REACTIONS (1)
  - DEATH [None]
